FAERS Safety Report 4668199-X (Version None)
Quarter: 2005Q2

REPORT INFORMATION
  Report Type: 
  Country: None (occurrence: None)
  Receive Date: 20050523
  Receipt Date: 20041221
  Transmission Date: 20051028
  Serious: Yes (Other)
  Sender: FDA-Public Use
  Company Number: PHEH2004US13571

PATIENT
  Age: 54 Year
  Sex: Female

DRUGS (7)
  1. PAMIDRONATE DISODIUM [Suspect]
     Dosage: 90MG Q4WEEKS
     Dates: start: 20001201, end: 20010601
  2. ZOLEDRONATE [Suspect]
     Dosage: UNK, UNK
     Dates: start: 20040701, end: 20040901
  3. THALIDOMIDE [Concomitant]
     Dosage: 100MG QHS ORAL
     Dates: start: 20030201
  4. DEXAMETHASONE [Concomitant]
     Dosage: 40MG X4 DAYS Q4WEEKS, ORAL
     Dates: start: 20001201
  5. DEXAMETHASONE [Concomitant]
     Dosage: 40MG QWEEK, ORAL
     Dates: start: 20030201
  6. VINCRISTINE [Concomitant]
     Dates: start: 20001201
  7. DOXORUBICIN HCL [Concomitant]
     Dates: start: 20001201

REACTIONS (1)
  - OSTEONECROSIS [None]
